FAERS Safety Report 10222151 (Version 1)
Quarter: 2014Q2

REPORT INFORMATION
  Report Type: Spontaneous
  Country: US (occurrence: None)
  Receive Date: 20140606
  Receipt Date: 20140606
  Transmission Date: 20141212
  Serious: Yes (Death, Life-Threatening, Hospitalization, Disabling)
  Sender: FDA-Public Use
  Company Number: None

PATIENT
  Age: 64 Year
  Sex: Female

DRUGS (1)
  1. CEFTRIAXONE [Suspect]
     Indication: LOCALISED INFECTION
     Route: 042
     Dates: start: 20140603, end: 20140603

REACTIONS (6)
  - Feeling abnormal [None]
  - Dyspnoea [None]
  - Pulse absent [None]
  - Heart rate increased [None]
  - Resuscitation [None]
  - Infusion related reaction [None]
